FAERS Safety Report 20726717 (Version 4)
Quarter: 2024Q1

REPORT INFORMATION
  Report Type: Spontaneous
  Country: US (occurrence: US)
  Receive Date: 20220419
  Receipt Date: 20240129
  Transmission Date: 20240410
  Serious: Yes (Other)
  Sender: FDA-Public Use
  Company Number: US-PFIZER INC-202200546653

PATIENT
  Age: 72 Year
  Sex: Female
  Weight: 109.77 kg

DRUGS (6)
  1. IBRANCE [Suspect]
     Active Substance: PALBOCICLIB
     Indication: Breast cancer metastatic
     Dosage: 125 MG (DAYS 1-28; FOR A MONTH)
     Dates: start: 20220227
  2. IBRANCE [Suspect]
     Active Substance: PALBOCICLIB
     Indication: Metastases to bone
     Dosage: 100 MG
  3. IBRANCE [Suspect]
     Active Substance: PALBOCICLIB
     Dosage: 75 MG, (DAYS 1-14 OF 28 DAY CYCLE)
     Dates: start: 202207
  4. IBRANCE [Suspect]
     Active Substance: PALBOCICLIB
     Dosage: 1 PILL PO ONE DAY 1-21 OF 28 DAY CYCLE
     Route: 048
  5. IBRANCE [Suspect]
     Active Substance: PALBOCICLIB
     Dosage: 75 MG ORALLY DAILY, ON DAYS 1-14 OF EACH 23-DAY CYCLE
     Route: 048
  6. OMEPRAZOLE [Concomitant]
     Active Substance: OMEPRAZOLE
     Dosage: UNK

REACTIONS (5)
  - Renal impairment [Unknown]
  - Full blood count abnormal [Recovered/Resolved]
  - Anaemia [Unknown]
  - Off label use [Unknown]
  - Product use issue [Unknown]

NARRATIVE: CASE EVENT DATE: 20220101
